FAERS Safety Report 5825903-2 (Version None)
Quarter: 2008Q3

REPORT INFORMATION
  Report Type: 
  Country: None (occurrence: None)
  Receive Date: 20080729
  Receipt Date: 20080717
  Transmission Date: 20090109
  Serious: Yes (Hospitalization)
  Sender: FDA-Public Use
  Company Number: GB-AVENTIS-200816991GDDC

PATIENT
  Age: 13 Year
  Sex: Male

DRUGS (2)
  1. HYDROCORTISONE [Suspect]
     Indication: DERMATITIS ATOPIC
     Route: 061
  2. HYDROCORTISONE [Suspect]
     Route: 061

REACTIONS (3)
  - CATARACT [None]
  - ENDOPHTHALMITIS [None]
  - POSTERIOR CAPSULE OPACIFICATION [None]
